FAERS Safety Report 10257852 (Version 3)
Quarter: 2014Q4

REPORT INFORMATION
  Report Type: Spontaneous
  Country: IT (occurrence: None)
  Receive Date: 20140620
  Receipt Date: 20141010
  Transmission Date: 20150528
  Serious: Yes (Life-Threatening)
  Sender: FDA-Public Use
  Company Number: FK201402397

PATIENT
  Age: 72 Year
  Sex: Male
  Weight: 108 kg

DRUGS (9)
  1. SEVORANE (SEVOFLURANE) [Concomitant]
  2. POTASSIUM CHLORIDE 150 MG / ML (POTASSIUM CHLORIDE) (POTASSIUM CHLORIDE) [Suspect]
     Active Substance: POTASSIUM CHLORIDE
     Indication: BLOOD POTASSIUM DECREASED
     Route: 041
     Dates: start: 20140327, end: 20140327
  3. ONDANSETRON. [Concomitant]
     Active Substance: ONDANSETRON
  4. PROPOFOL (PROPOFOL) [Concomitant]
     Active Substance: PROPOFOL
  5. HEPARIN SODIUM (HEPARIN) [Concomitant]
  6. RANITIDINE HYDROCHLORIDE (RANITIDINE HYDROCHLORIDE) (RANITIDINE HYDROCHLORIDE) [Concomitant]
  7. FENTANEST (FENTANYL) [Concomitant]
  8. ESMERON (ROCURONIUM BROMIDE) [Concomitant]
  9. TORA-DOL (KETOROLAC TROMETHAMINE) [Concomitant]

REACTIONS (5)
  - Cardiac arrest [None]
  - Medication error [None]
  - Procedural complication [None]
  - Circulatory collapse [None]
  - Drug administration error [None]

NARRATIVE: CASE EVENT DATE: 20140327
